FAERS Safety Report 21098429 (Version 1)
Quarter: 2022Q3

REPORT INFORMATION
  Report Type: Spontaneous
  Country: US (occurrence: None)
  Receive Date: 20220718
  Receipt Date: 20220718
  Transmission Date: 20221026
  Serious: No
  Sender: FDA-Public Use
  Company Number: None

PATIENT
  Age: 67 Year
  Sex: Female
  Weight: 108.86 kg

DRUGS (1)
  1. XELJANZ XR [Suspect]
     Active Substance: TOFACITINIB CITRATE
     Indication: Psoriatic arthropathy
     Dosage: OTHER QUANTITY : TAKE 1 TABLET;?OTHER FREQUENCY : EVERY AM;NOT CRUSH;?
     Route: 048
     Dates: start: 202202

REACTIONS (1)
  - COVID-19 [None]
